FAERS Safety Report 8913783 (Version 1)
Quarter: 2012Q4

REPORT INFORMATION
  Report Type: 
  Country: CA (occurrence: CA)
  Receive Date: 20121116
  Receipt Date: 20121116
  Transmission Date: 20130627
  Serious: Yes (Other)
  Sender: FDA-Public Use
  Company Number: CA-ASTRAZENECA-2012SE85245

PATIENT
  Age: 30 Year
  Sex: Female

DRUGS (3)
  1. ARIMIDEX [Suspect]
     Route: 048
  2. AROMASIN [Suspect]
     Route: 065
  3. LETROZOLE [Suspect]
     Route: 065

REACTIONS (6)
  - Metastases to lymph nodes [Unknown]
  - Neoplasm malignant [Unknown]
  - Neoplasm progression [Unknown]
  - Pain of skin [Unknown]
  - Pruritus [Unknown]
  - Skin lesion [Unknown]
